FAERS Safety Report 15560989 (Version 4)
Quarter: 2019Q2

REPORT INFORMATION
  Report Type: Spontaneous
  Country: US (occurrence: US)
  Receive Date: 20181029
  Receipt Date: 20190403
  Transmission Date: 20190711
  Serious: Yes (Other)
  Sender: FDA-Public Use
  Company Number: US-PFIZER INC-2018430873

PATIENT
  Age: 53 Year
  Sex: Female

DRUGS (2)
  1. LYRICA [Suspect]
     Active Substance: PREGABALIN
     Indication: NEURALGIA
     Dosage: 75 MG, 2X/DAY
     Route: 048
     Dates: start: 2016
  2. LYRICA [Suspect]
     Active Substance: PREGABALIN
     Indication: LUMBAR RADICULOPATHY
     Dosage: 50 MG, 2X/DAY
     Dates: start: 20180829, end: 20180831

REACTIONS (9)
  - Swelling face [Recovered/Resolved]
  - Dysphonia [Not Recovered/Not Resolved]
  - Rash [Recovered/Resolved]
  - Vomiting [Unknown]
  - Vocal cord disorder [Unknown]
  - Oropharyngeal pain [Recovered/Resolved]
  - Anaphylactic reaction [Unknown]
  - Speech disorder [Not Recovered/Not Resolved]
  - Dyspnoea [Unknown]

NARRATIVE: CASE EVENT DATE: 2018
